FAERS Safety Report 4891410-7 (Version None)
Quarter: 2005Q4

REPORT INFORMATION
  Report Type: 
  Country: None (occurrence: None)
  Receive Date: 20051223
  Receipt Date: 20051117
  Transmission Date: 20060501
  Serious: No
  Sender: FDA-Public Use
  Company Number: 219619

PATIENT
  Age: 60 Year
  Sex: Female

DRUGS (2)
  1. AVASTIN [Suspect]
     Indication: COLORECTAL CANCER METASTATIC
     Dates: start: 20050506
  2. ANTIDIABETIC DRUG NOS (ANTIDIABETIC DRUG NOS) [Concomitant]

REACTIONS (1)
  - HYPOGLYCAEMIA [None]
